FAERS Safety Report 8500069-9 (Version None)
Quarter: 2012Q3

REPORT INFORMATION
  Report Type: 
  Country: None (occurrence: None)
  Receive Date: 20120710
  Receipt Date: 20120706
  Transmission Date: 20120928
  Serious: Yes (Death, Hospitalization)
  Sender: FDA-Public Use
  Company Number: JP-BAYER-2012-067642

PATIENT
  Age: 68 Year
  Sex: Female

DRUGS (2)
  1. PLACEBO [Suspect]
     Indication: HEPATIC NEOPLASM MALIGNANT
     Dosage: UNK
     Route: 048
     Dates: start: 20100929, end: 20101031
  2. SORAFENIB (RAF KINASE INHIBITOR) [Suspect]
     Indication: HEPATIC NEOPLASM MALIGNANT
     Dosage: 400 MG, QD
     Route: 048
     Dates: start: 20100901, end: 20101031

REACTIONS (3)
  - HEPATIC NEOPLASM MALIGNANT [None]
  - NEOPLASM PROGRESSION [None]
  - ASCITES [None]
